FAERS Safety Report 9339954 (Version 1)
Quarter: 2013Q2

REPORT INFORMATION
  Report Type: Spontaneous
  Country: US (occurrence: None)
  Receive Date: 20130607
  Receipt Date: 20130607
  Transmission Date: 20140414
  Serious: No
  Sender: FDA-Public Use
  Company Number: None

PATIENT
  Age: 49 Year
  Sex: Female

DRUGS (1)
  1. VIREAD [Suspect]
     Indication: HEPATITIS B
     Dosage: FROM 3 YEARS AGO TO PRESENT
     Route: 048

REACTIONS (3)
  - Gingival pain [None]
  - Tooth loss [None]
  - Tooth disorder [None]
